FAERS Safety Report 22199510 (Version 1)
Quarter: 2023Q2

REPORT INFORMATION
  Report Type: Spontaneous
  Country: US (occurrence: US)
  Receive Date: 20230412
  Receipt Date: 20230412
  Transmission Date: 20230722
  Serious: No
  Sender: FDA-Public Use
  Company Number: US-Ipsen Biopharmaceuticals, Inc.-2023-05203

PATIENT
  Age: 58 Year
  Sex: Female

DRUGS (5)
  1. DYSPORT [Suspect]
     Active Substance: ABOBOTULINUMTOXINA
     Indication: Skin wrinkling
     Dosage: 60 TO THE GLABELLA, 38 TO THE FRONTALIS AND 50 TO THE CROWS FEET
     Route: 065
     Dates: start: 20230201, end: 20230215
  2. DYSPORT [Suspect]
     Active Substance: ABOBOTULINUMTOXINA
     Indication: Skin wrinkling
     Dosage: 60 TO THE GLABELLA, 38 TO THE FRONTALIS AND 50 TO THE CROWS FEET
     Route: 065
     Dates: start: 20230223
  3. DYSPORT [Suspect]
     Active Substance: ABOBOTULINUMTOXINA
     Indication: Eyelid erosion
  4. DYSPORT [Suspect]
     Active Substance: ABOBOTULINUMTOXINA
     Indication: Eyelid erosion
  5. DYSPORT [Suspect]
     Active Substance: ABOBOTULINUMTOXINA
     Indication: Skin cosmetic procedure

REACTIONS (4)
  - Eyelid ptosis [Recovering/Resolving]
  - Lagophthalmos [Recovering/Resolving]
  - Vision blurred [Not Recovered/Not Resolved]
  - Off label use [Unknown]
